FAERS Safety Report 15503383 (Version 1)
Quarter: 2018Q4

REPORT INFORMATION
  Report Type: Spontaneous
  Country: AQ (occurrence: AQ)
  Receive Date: 20181015
  Receipt Date: 20181015
  Transmission Date: 20190205
  Serious: No
  Sender: FDA-Public Use
  Company Number: None

PATIENT
  Age: 21 Year
  Sex: Male
  Weight: 62.1 kg

DRUGS (8)
  1. LAMICTAL [Concomitant]
     Active Substance: LAMOTRIGINE
  2. NATURE MADE VITAMIN D [Concomitant]
  3. WELLBUTRIN [Suspect]
     Active Substance: BUPROPION HYDROCHLORIDE
     Indication: BIPOLAR DISORDER
     Dosage: ?          OTHER STRENGTH:N/A;QUANTITY:1 TABLET(S);?
     Route: 048
     Dates: start: 20180901, end: 20180925
  4. WELLBUTRIN [Suspect]
     Active Substance: BUPROPION HYDROCHLORIDE
     Indication: DELUSIONAL DISORDER, UNSPECIFIED TYPE
     Dosage: ?          OTHER STRENGTH:N/A;QUANTITY:1 TABLET(S);?
     Route: 048
     Dates: start: 20180901, end: 20180925
  5. PALIPERIDONE. [Suspect]
     Active Substance: PALIPERIDONE
  6. AMBIEN [Suspect]
     Active Substance: ZOLPIDEM TARTRATE
  7. RISPERDONE [Suspect]
     Active Substance: RISPERIDONE
  8. SEROQUEL [Suspect]
     Active Substance: QUETIAPINE FUMARATE

REACTIONS (4)
  - Hallucination [None]
  - Product complaint [None]
  - Delusion [None]
  - Nervous system disorder [None]

NARRATIVE: CASE EVENT DATE: 20180911
